FAERS Safety Report 23836240 (Version 1)
Quarter: 2024Q2

REPORT INFORMATION
  Report Type: Spontaneous
  Country: US (occurrence: None)
  Receive Date: 20240508
  Receipt Date: 20240508
  Transmission Date: 20240716
  Serious: Yes (Death, Hospitalization)
  Sender: FDA-Public Use
  Company Number: None

PATIENT
  Age: 15 Year
  Sex: Male
  Weight: 72.8 kg

DRUGS (9)
  1. CALASPARGASE PEGOL-MKNL [Suspect]
     Active Substance: CALASPARGASE PEGOL-MKNL
     Dates: end: 20240316
  2. CYTARABINE [Suspect]
     Active Substance: CYTARABINE
     Dosage: DOSE: 1 DOSE OF 140MG, 2 DOSES OF 30MG, 2 DOSES OF 3600MG
     Dates: end: 20240316
  3. DEXAMETHASONE [Suspect]
     Active Substance: DEXAMETHASONE
     Dosage: 8 DOSES OF 18MG, 6 DOSES OF 4 MG, AND 1 DOSE OF 8MG
     Dates: end: 20240317
  4. LEUCOVORIN CALCIUM [Suspect]
     Active Substance: LEUCOVORIN CALCIUM
     Dosage: 12 DOSES OF 12 MG, 4 DOSES OF 15MG, 1 DOSE OF900MG, AND 1 DOSE OF 8000MG
     Dates: end: 20240319
  5. MERCAPTOPURINE [Suspect]
     Active Substance: MERCAPTOPURINE
     Dates: end: 20240301
  6. METHOTREXATE [Suspect]
     Active Substance: METHOTREXATE
     Dates: end: 20240313
  7. GLEEVEC [Suspect]
     Active Substance: IMATINIB MESYLATE
     Dosage: 3 DOSES OF 100MG, 4 DOSES OF 400MG, AND 18 DOSES OF 400MG
     Dates: end: 20240313
  8. VINCRISTINE SULFATE [Suspect]
     Active Substance: VINCRISTINE SULFATE
     Dates: end: 20240312
  9. VINCRISTINE SULFATE [Suspect]
     Active Substance: VINCRISTINE SULFATE

REACTIONS (7)
  - Treatment failure [None]
  - Influenza [None]
  - Myelosuppression [None]
  - Septic shock [None]
  - Bacterial sepsis [None]
  - Multiple organ dysfunction syndrome [None]
  - Disseminated intravascular coagulation [None]

NARRATIVE: CASE EVENT DATE: 20240318
